FAERS Safety Report 18721396 (Version 1)
Quarter: 2021Q1

REPORT INFORMATION
  Report Type: Spontaneous
  Country: FR (occurrence: FR)
  Receive Date: 20210109
  Receipt Date: 20210109
  Transmission Date: 20210419
  Serious: Yes (Other)
  Sender: FDA-Public Use
  Company Number: NVSC2021FR000707

PATIENT
  Age: 84 Year
  Sex: Male
  Weight: 84 kg

DRUGS (11)
  1. CALCIPARINE [Suspect]
     Active Substance: HEPARIN CALCIUM
     Indication: CIRCULATING ANTICOAGULANT
     Dosage: 9 DF, QD
     Route: 042
     Dates: start: 20201204, end: 20201214
  2. RAMIPRIL. [Concomitant]
     Active Substance: RAMIPRIL
     Indication: PRODUCT USED FOR UNKNOWN INDICATION
     Dosage: UNK
     Route: 048
  3. METFORMINE [Concomitant]
     Active Substance: METFORMIN HYDROCHLORIDE
     Indication: PRODUCT USED FOR UNKNOWN INDICATION
     Dosage: UNK
     Route: 048
  4. RIFAMPICIN [Suspect]
     Active Substance: RIFAMPIN
     Indication: STAPHYLOCOCCAL SEPSIS
     Dosage: 600 MG, QD
     Route: 048
     Dates: start: 20201205, end: 20201217
  5. NEBIVOLOL. [Concomitant]
     Active Substance: NEBIVOLOL
     Indication: PRODUCT USED FOR UNKNOWN INDICATION
     Dosage: UNK
     Route: 048
  6. CLOXACILLIN [Suspect]
     Active Substance: CLOXACILLIN
     Dosage: 6 G, QD
     Route: 042
     Dates: start: 20201210, end: 20201216
  7. KARDEGIC [Concomitant]
     Active Substance: ASPIRIN DL-LYSINE
     Indication: PRODUCT USED FOR UNKNOWN INDICATION
     Dosage: UNK (POUDRE POUR SOLUTION BUVABLE EN SACHET?DOSE)
     Route: 048
  8. CLOXACILLIN [Suspect]
     Active Substance: CLOXACILLIN
     Indication: STAPHYLOCOCCAL SEPSIS
     Dosage: 12 G, QD
     Route: 042
     Dates: start: 20201130, end: 20201209
  9. AMAREL [Concomitant]
     Active Substance: GLIMEPIRIDE
     Indication: PRODUCT USED FOR UNKNOWN INDICATION
     Dosage: UNK
     Route: 048
  10. TAHOR [Concomitant]
     Active Substance: ATORVASTATIN CALCIUM
     Indication: PRODUCT USED FOR UNKNOWN INDICATION
     Dosage: UNK
     Route: 048
  11. TRESIBA [Concomitant]
     Active Substance: INSULIN DEGLUDEC
     Indication: PRODUCT USED FOR UNKNOWN INDICATION
     Dosage: UNK
     Route: 030

REACTIONS (1)
  - Thrombocytopenia [Not Recovered/Not Resolved]

NARRATIVE: CASE EVENT DATE: 20201212
